FAERS Safety Report 4612881-7 (Version None)
Quarter: 2005Q1

REPORT INFORMATION
  Report Type: 
  Country: None (occurrence: None)
  Receive Date: 20050318
  Receipt Date: 20041213
  Transmission Date: 20050727
  Serious: Yes (Disabling, Other)
  Sender: FDA-Public Use
  Company Number: PHRM2004FR03705

PATIENT
  Age: 74 Year
  Sex: Female
  Weight: 67 kg

DRUGS (18)
  1. LYTOS [Suspect]
     Dosage: 520 MG, BID
     Route: 048
     Dates: start: 20010101, end: 20010801
  2. DEXAMETHASONE [Concomitant]
     Indication: MULTIPLE MYELOMA
     Dosage: 16 COURSES OF 4 DAYS
     Dates: start: 19971001, end: 19990101
  3. DEXAMETHASONE [Concomitant]
     Dates: start: 20031101, end: 20050101
  4. DEXAMETHASONE [Concomitant]
     Dosage: 12 COURSES
     Dates: start: 19991101, end: 20010101
  5. MELPHALAN [Concomitant]
     Indication: MULTIPLE MYELOMA
     Dosage: 12 COURSES OF 4 DAYS
     Dates: start: 19971001, end: 19990101
  6. MELPHALAN [Concomitant]
     Dosage: 12 COURSES
     Dates: start: 19991101, end: 20010101
  7. THALIDOMIDE [Concomitant]
     Dosage: 200 MG DAILY
  8. THALIDOMIDE [Concomitant]
     Dosage: 400 MG DAILY
     Dates: start: 20010901, end: 20020801
  9. PREVISCAN [Concomitant]
     Indication: PULMONARY EMBOLISM
     Dates: start: 20040201
  10. LOZOL [Concomitant]
  11. LODALES [Concomitant]
  12. TAREG [Concomitant]
  13. TANAKAN [Concomitant]
  14. ENOXOR [Concomitant]
  15. AREDIA [Suspect]
     Indication: MULTIPLE MYELOMA
     Dosage: 90 MG, QMO
     Route: 042
     Dates: start: 19991101, end: 20010101
  16. AREDIA [Suspect]
     Dosage: 90 MG, QMO
     Route: 042
     Dates: start: 20010901, end: 20031101
  17. AREDIA [Suspect]
     Dosage: 90 MG, QMO
     Route: 042
     Dates: start: 19971001, end: 19990101
  18. ZOMETA [Suspect]
     Indication: MULTIPLE MYELOMA
     Dosage: 4 MG, QMO
     Route: 042
     Dates: start: 20031101, end: 20041101

REACTIONS (10)
  - BONE DISORDER [None]
  - FRACTURE [None]
  - HYPOAESTHESIA [None]
  - JAW OPERATION [None]
  - OSTEITIS [None]
  - OSTEOLYSIS [None]
  - OSTEONECROSIS [None]
  - PAIN IN JAW [None]
  - PULMONARY EMBOLISM [None]
  - TOOTH EXTRACTION [None]
